FAERS Safety Report 6894161-2 (Version None)
Quarter: 2010Q3

REPORT INFORMATION
  Report Type: 
  Country: None (occurrence: None)
  Receive Date: 20100802
  Receipt Date: 20100721
  Transmission Date: 20110219
  Serious: Yes (Hospitalization)
  Sender: FDA-Public Use
  Company Number: HU-JNJFOC-20070400460

PATIENT
  Sex: Female

DRUGS (13)
  1. GOLIMUMAB [Suspect]
     Indication: ASTHMA
     Route: 058
  2. GOLIMUMAB [Suspect]
     Route: 058
  3. GOLIMUMAB [Suspect]
     Route: 058
  4. GOLIMUMAB [Suspect]
     Route: 058
  5. GOLIMUMAB [Suspect]
     Route: 058
  6. GOLIMUMAB [Suspect]
     Route: 058
  7. GOLIMUMAB [Suspect]
     Route: 058
  8. GOLIMUMAB [Suspect]
     Route: 058
  9. GOLIMUMAB [Suspect]
     Route: 058
  10. GOLIMUMAB [Suspect]
     Route: 058
  11. SERETIDE [Concomitant]
     Indication: ASTHMA
     Dosage: 2 PUFFS
     Route: 055
  12. ALBUTEROL [Concomitant]
     Indication: ASTHMA
  13. FLUTICASONE [Concomitant]
     Indication: ASTHMA

REACTIONS (1)
  - B-CELL LYMPHOMA [None]
